FAERS Safety Report 8115496-1 (Version None)
Quarter: 2012Q1

REPORT INFORMATION
  Report Type: 
  Country: None (occurrence: None)
  Receive Date: 20120206
  Receipt Date: 20120202
  Transmission Date: 20120608
  Serious: No
  Sender: FDA-Public Use
  Company Number: US-PFIZER INC-2012029524

PATIENT
  Sex: Male
  Weight: 111 kg

DRUGS (5)
  1. MORPHINE SULFATE [Concomitant]
     Dosage: UNK
  2. NEURONTIN [Concomitant]
     Dosage: UNK
  3. CHANTIX [Suspect]
     Indication: SMOKING CESSATION THERAPY
     Dosage: 0.5 MG, 1X/DAY
     Route: 048
     Dates: start: 20111101, end: 20120123
  4. SEROQUEL [Concomitant]
     Dosage: UNK
  5. TRAZODONE [Concomitant]
     Dosage: UNK

REACTIONS (1)
  - NASOPHARYNGITIS [None]
